FAERS Safety Report 23797295 (Version 1)
Quarter: 2024Q2

REPORT INFORMATION
  Report Type: Spontaneous
  Country: US (occurrence: US)
  Receive Date: 20240430
  Receipt Date: 20240430
  Transmission Date: 20240716
  Serious: Yes (Death, Hospitalization)
  Sender: FDA-Public Use
  Company Number: None

PATIENT
  Age: 49 Year
  Sex: Male

DRUGS (31)
  1. QUETIAPINE [Suspect]
     Active Substance: QUETIAPINE
     Indication: Malignant catatonia
  2. QUETIAPINE [Suspect]
     Active Substance: QUETIAPINE
     Indication: Schizophrenia
  3. OLANZAPINE [Suspect]
     Active Substance: OLANZAPINE
     Indication: Schizophrenia
     Dosage: TITRATED?DAILY DOSE: 10 MILLIGRAM
  4. OLANZAPINE [Suspect]
     Active Substance: OLANZAPINE
     Indication: Malignant catatonia
     Dosage: TITRATED?DAILY DOSE: 10 MILLIGRAM
  5. OLANZAPINE [Suspect]
     Active Substance: OLANZAPINE
     Indication: Schizophrenia
     Dosage: TITRATED TO A DOSE OF 20 MG NIGHTLY?DAILY DOSE: 20 MILLIGRAM
  6. OLANZAPINE [Suspect]
     Active Substance: OLANZAPINE
     Indication: Malignant catatonia
     Dosage: TITRATED TO A DOSE OF 20 MG NIGHTLY?DAILY DOSE: 20 MILLIGRAM
  7. OLANZAPINE [Suspect]
     Active Substance: OLANZAPINE
     Indication: Schizophrenia
     Dosage: AT BEDTIME?DAILY DOSE: 10 MILLIGRAM
  8. OLANZAPINE [Suspect]
     Active Substance: OLANZAPINE
     Indication: Malignant catatonia
     Dosage: AT BEDTIME?DAILY DOSE: 10 MILLIGRAM
  9. OLANZAPINE [Suspect]
     Active Substance: OLANZAPINE
     Indication: Schizophrenia
     Dosage: AT NIGHT?DAILY DOSE: 5 MILLIGRAM
  10. OLANZAPINE [Suspect]
     Active Substance: OLANZAPINE
     Indication: Malignant catatonia
     Dosage: AT NIGHT?DAILY DOSE: 5 MILLIGRAM
  11. LORAZEPAM [Suspect]
     Active Substance: LORAZEPAM
     Indication: Schizophrenia
     Dosage: EVERY 8 HOURS?DAILY DOSE: 3 MILLIGRAM
  12. LORAZEPAM [Suspect]
     Active Substance: LORAZEPAM
     Indication: Malignant catatonia
     Dosage: EVERY 8 HOURS?DAILY DOSE: 3 MILLIGRAM
  13. LORAZEPAM [Suspect]
     Active Substance: LORAZEPAM
     Indication: Schizophrenia
     Dosage: FOUR TIMES A DAY?DAILY DOSE: 6 MILLIGRAM
  14. LORAZEPAM [Suspect]
     Active Substance: LORAZEPAM
     Indication: Malignant catatonia
     Dosage: FOUR TIMES A DAY?DAILY DOSE: 6 MILLIGRAM
  15. LORAZEPAM [Suspect]
     Active Substance: LORAZEPAM
     Indication: Schizophrenia
     Route: 030
  16. LORAZEPAM [Suspect]
     Active Substance: LORAZEPAM
     Indication: Malignant catatonia
     Route: 030
  17. LORAZEPAM [Suspect]
     Active Substance: LORAZEPAM
     Indication: Schizophrenia
     Dosage: 20 MG DAILY, WITH UP TO 10 MG DAILY GIVEN EMERGENTLY AND IM?DAILY DOSE: 20 MILLIGRAM
  18. LORAZEPAM [Suspect]
     Active Substance: LORAZEPAM
     Indication: Malignant catatonia
     Dosage: 20 MG DAILY, WITH UP TO 10 MG DAILY GIVEN EMERGENTLY AND IM?DAILY DOSE: 20 MILLIGRAM
  19. LORAZEPAM [Suspect]
     Active Substance: LORAZEPAM
     Indication: Schizophrenia
  20. LORAZEPAM [Suspect]
     Active Substance: LORAZEPAM
     Indication: Malignant catatonia
  21. CLOZAPINE [Suspect]
     Active Substance: CLOZAPINE
     Indication: Schizophrenia
  22. CLOZAPINE [Suspect]
     Active Substance: CLOZAPINE
     Indication: Malignant catatonia
  23. CLOZAPINE [Suspect]
     Active Substance: CLOZAPINE
     Indication: Neuroleptic malignant syndrome
  24. AMANTADINE [Suspect]
     Active Substance: AMANTADINE
     Indication: Malignant catatonia
  25. AMANTADINE [Suspect]
     Active Substance: AMANTADINE
     Indication: Schizophrenia
  26. DIAZEPAM [Suspect]
     Active Substance: DIAZEPAM
     Indication: Status epilepticus
     Dosage: TITRATED TO 12.5 MG FOUR TIMES A DAY?DAILY DOSE: 30 MILLIGRAM
     Route: 042
  27. VALPROIC ACID [Suspect]
     Active Substance: VALPROIC ACID
     Indication: Status epilepticus
     Dosage: 800 MG THREE TIMES A DAY?DAILY DOSE: 2400 MILLIGRAM
     Route: 042
  28. VALPROIC ACID [Suspect]
     Active Substance: VALPROIC ACID
     Indication: Status epilepticus
     Dosage: 800 MG THREE TIMES A DAY?DAILY DOSE: 2400 MILLIGRAM
     Route: 042
  29. PROPOFOL [Suspect]
     Active Substance: PROPOFOL
     Indication: Sedation
  30. CHLORPROMAZINE [Suspect]
     Active Substance: CHLORPROMAZINE
     Indication: Malignant catatonia
  31. CHLORPROMAZINE [Suspect]
     Active Substance: CHLORPROMAZINE
     Indication: Schizophrenia

REACTIONS (15)
  - Pneumonia aspiration [Fatal]
  - Respiratory arrest [Fatal]
  - Deep vein thrombosis [Unknown]
  - Status epilepticus [Unknown]
  - Renal impairment [Unknown]
  - Hepatic function abnormal [Unknown]
  - Multiple organ dysfunction syndrome [Unknown]
  - Suicide attempt [Unknown]
  - Catatonia [Unknown]
  - Drug ineffective [Unknown]
  - Pyrexia [Unknown]
  - Tachycardia [Unknown]
  - Lethargy [Unknown]
  - Hypotension [Unknown]
  - Blood creatine phosphokinase increased [Unknown]
